FAERS Safety Report 7212087-1 (Version None)
Quarter: 2011Q1

REPORT INFORMATION
  Report Type: 
  Country: None (occurrence: None)
  Receive Date: 20110106
  Receipt Date: 20100916
  Transmission Date: 20110831
  Serious: Yes (Hospitalization, Other)
  Sender: FDA-Public Use
  Company Number: FR-CELGENEUS-056-21880-10090301

PATIENT
  Age: 61 Year
  Sex: Male

DRUGS (4)
  1. DEBRIDAT [Concomitant]
     Route: 065
  2. SMECTA [Concomitant]
     Route: 065
  3. REVLIMID [Suspect]
     Indication: MULTIPLE MYELOMA
     Route: 048
     Dates: start: 20070117
  4. TIORFAN [Concomitant]
     Route: 065

REACTIONS (4)
  - DIARRHOEA [None]
  - ABDOMINAL PAIN [None]
  - WEIGHT DECREASED [None]
  - VOMITING [None]
